FAERS Safety Report 7783565-1 (Version None)
Quarter: 2011Q3

REPORT INFORMATION
  Report Type: 
  Country: None (occurrence: None)
  Receive Date: 20110928
  Receipt Date: 20110923
  Transmission Date: 20111222
  Serious: No
  Sender: FDA-Public Use
  Company Number: US-MYLANLABS-2011S1017853

PATIENT
  Age: 53 Year
  Sex: Female
  Weight: 99.3 kg

DRUGS (12)
  1. RAMIPRIL [Concomitant]
     Route: 048
     Dates: start: 20081107
  2. SIBUTRAMINE HYDROCHLORIDE MONOHYDRATE [Concomitant]
     Route: 048
     Dates: start: 20100816
  3. LETROZOLE [Suspect]
  4. ALENDRONATE SODIUM [Concomitant]
     Route: 048
     Dates: start: 20100816
  5. ATORVASTATIN [Concomitant]
     Route: 048
     Dates: start: 20101129
  6. CALCIUM CITRATE [Concomitant]
     Route: 048
     Dates: start: 20110718
  7. FISH OIL [Concomitant]
     Route: 048
     Dates: start: 20081107
  8. METFORMIN HCL [Concomitant]
     Route: 048
     Dates: start: 20101129
  9. LEVOTHYROXINE SODIUM [Concomitant]
     Route: 048
     Dates: start: 20081107
  10. NAPROXEN [Concomitant]
     Dosage: 1 TABLET
     Route: 048
     Dates: start: 20110718
  11. CHOLECALCIFEROL [Concomitant]
     Dosage: TWO PILLS
     Route: 048
     Dates: start: 20091123
  12. DIPHENHYDRAMINE HCL [Concomitant]
     Route: 048
     Dates: start: 20100408

REACTIONS (3)
  - JOINT SWELLING [None]
  - ONYCHOCLASIS [None]
  - WEIGHT INCREASED [None]
